FAERS Safety Report 19291610 (Version 1)
Quarter: 2021Q2

REPORT INFORMATION
  Report Type: Spontaneous
  Country: RO (occurrence: RO)
  Receive Date: 20210523
  Receipt Date: 20210523
  Transmission Date: 20210717
  Serious: Yes (Hospitalization)
  Sender: FDA-Public Use
  Company Number: RO-ABBVIE-21K-135-3914368-00

PATIENT
  Age: 81 Year
  Sex: Female

DRUGS (1)
  1. HUMIRA [Suspect]
     Active Substance: ADALIMUMAB
     Indication: RHEUMATOID ARTHRITIS
     Route: 058
     Dates: start: 2020, end: 202009

REACTIONS (7)
  - Confusional state [Not Recovered/Not Resolved]
  - Vascular dementia [Unknown]
  - Herpes zoster [Not Recovered/Not Resolved]
  - Psoriasis [Recovered/Resolved]
  - Weight decreased [Unknown]
  - Dementia Alzheimer^s type [Unknown]
  - COVID-19 [Unknown]

NARRATIVE: CASE EVENT DATE: 202009
